FAERS Safety Report 9160122 (Version 1)
Quarter: 2013Q1

REPORT INFORMATION
  Report Type: Spontaneous
  Country: US (occurrence: US)
  Receive Date: 20130313
  Receipt Date: 20130313
  Transmission Date: 20140127
  Serious: Yes (Other)
  Sender: FDA-Public Use
  Company Number: US-BAYER-2013-031005

PATIENT
  Sex: Female

DRUGS (1)
  1. AVELOX [Suspect]
     Indication: SINUSITIS
     Dosage: STARTED TWO + HALF YEARS AGO
     Dates: start: 2011, end: 2011

REACTIONS (2)
  - Tendon rupture [Recovered/Resolved]
  - Joint crepitation [Recovered/Resolved]
